FAERS Safety Report 15663303 (Version 4)
Quarter: 2019Q2

REPORT INFORMATION
  Report Type: Report from Study
  Country: None (occurrence: US)
  Receive Date: 20181128
  Receipt Date: 20190409
  Transmission Date: 20190711
  Serious: Yes (Hospitalization, Other)
  Sender: FDA-Public Use
  Company Number: US-ABBVIE-18K-163-2491745-00

PATIENT
  Sex: Female

DRUGS (1)
  1. HUMIRA [Suspect]
     Active Substance: ADALIMUMAB
     Indication: COLITIS ULCERATIVE
     Route: 058

REACTIONS (19)
  - Fatigue [Unknown]
  - Impaired gastric emptying [Unknown]
  - Hyperphagia [Unknown]
  - Loss of consciousness [Unknown]
  - Exposure during pregnancy [Unknown]
  - Insomnia [Unknown]
  - Pain [Unknown]
  - Mucous stools [Unknown]
  - Unevaluable event [Unknown]
  - Cardiovascular insufficiency [Unknown]
  - Intervertebral disc protrusion [Unknown]
  - Urinary tract infection [Unknown]
  - Dehydration [Unknown]
  - Bone pain [Unknown]
  - Lethargy [Unknown]
  - Initial insomnia [Unknown]
  - Bipolar I disorder [Unknown]
  - Endometriosis [Unknown]
  - Chest pain [Unknown]
